FAERS Safety Report 8146861-4 (Version None)
Quarter: 2012Q1

REPORT INFORMATION
  Report Type: 
  Country: None (occurrence: None)
  Receive Date: 20120217
  Receipt Date: 20110808
  Transmission Date: 20120608
  Serious: No
  Sender: FDA-Public Use
  Company Number: US-ABBOTT-11P-163-0844763-00

PATIENT
  Sex: Male
  Weight: 95.34 kg

DRUGS (8)
  1. SIMCOR [Suspect]
     Indication: BLOOD TRIGLYCERIDES INCREASED
     Dosage: 500/20 MILLIGRAMS
     Dates: start: 20110601
  2. SPIRONOLACTONE [Concomitant]
     Indication: FLUID RETENTION
  3. ASPIRIN [Concomitant]
     Indication: CARDIOVASCULAR DISORDER
  4. ATACAND [Concomitant]
     Indication: HYPERTENSION
  5. WARFARIN SODIUM [Concomitant]
     Indication: ANTICOAGULANT THERAPY
  6. OMEPRAZOLE [Concomitant]
     Indication: GASTROOESOPHAGEAL REFLUX DISEASE
  7. CARVEDILOL [Concomitant]
     Indication: HYPERTENSION
  8. LORAZEPAM [Concomitant]
     Indication: ANXIETY

REACTIONS (1)
  - FLUSHING [None]
